FAERS Safety Report 4339017-4 (Version None)
Quarter: 2004Q2

REPORT INFORMATION
  Report Type: 
  Country: None (occurrence: None)
  Receive Date: 20040409
  Receipt Date: 20040329
  Transmission Date: 20050107
  Serious: No
  Sender: FDA-Public Use
  Company Number: RENA-10878

PATIENT
  Age: 63 Year
  Sex: Female
  Weight: 40 kg

DRUGS (7)
  1. RENAGEL [Suspect]
     Indication: HYPERPHOSPHATAEMIA
     Dosage: 0.8 G TID PO
     Route: 048
     Dates: start: 20031101, end: 20031201
  2. RENAGEL [Suspect]
     Indication: HYPERPHOSPHATAEMIA
     Dosage: 2.4 G TID PO
     Route: 048
     Dates: start: 20031201, end: 20031201
  3. MONOSORDIL [Concomitant]
  4. SALOSPIR [Concomitant]
  5. THYRORMONE [Concomitant]
  6. TOPAMAX [Concomitant]
  7. FILICINE [Concomitant]

REACTIONS (4)
  - DYSPEPSIA [None]
  - GASTRIC HAEMORRHAGE [None]
  - HAEMATEMESIS [None]
  - HAEMATOCRIT DECREASED [None]
